FAERS Safety Report 13328866 (Version 1)
Quarter: 2017Q1

REPORT INFORMATION
  Report Type: Spontaneous
  Country: US (occurrence: US)
  Receive Date: 20170310
  Receipt Date: 20170310
  Transmission Date: 20170428
  Serious: No
  Sender: FDA-Public Use
  Company Number: None

PATIENT
  Age: 68 Year
  Sex: Male

DRUGS (1)
  1. STIVARGA [Suspect]
     Active Substance: REGORAFENIB
     Indication: COLON CANCER
     Dosage: DAILY X21D Q28D
     Route: 048
     Dates: start: 20170222

REACTIONS (3)
  - Chills [None]
  - Feeling cold [None]
  - Feeling hot [None]

NARRATIVE: CASE EVENT DATE: 20170221
